FAERS Safety Report 8879750 (Version 2)
Quarter: 2012Q4

REPORT INFORMATION
  Report Type: 
  Country: PL (occurrence: PL)
  Receive Date: 20121101
  Receipt Date: 20121228
  Transmission Date: 20130627
  Serious: Yes (Life-Threatening, Other)
  Sender: FDA-Public Use
  Company Number: PL-CELGENEUS-129-21880-12103169

PATIENT
  Age: 68 Year
  Sex: Female

DRUGS (3)
  1. REVLIMID [Suspect]
     Indication: MULTIPLE MYELOMA
     Route: 048
     Dates: start: 20110721
  2. TRITACE [Concomitant]
     Indication: HYPERTENSION
     Dosage: 2.5 Milligram
     Route: 065
     Dates: start: 2008, end: 20121210
  3. PALEPRON [Concomitant]
     Indication: PAROXYSMAL ATRIAL FIBRILLATION
     Dosage: 150 Milligram
     Route: 065
     Dates: start: 20120731, end: 20121003

REACTIONS (2)
  - Atrioventricular block [Recovered/Resolved]
  - Atrial fibrillation [Unknown]
